FAERS Safety Report 9130844 (Version 1)
Quarter: 2013Q1

REPORT INFORMATION
  Report Type: Spontaneous
  Country: US (occurrence: US)
  Receive Date: 20130301
  Receipt Date: 20130301
  Transmission Date: 20140127
  Serious: Yes (Other)
  Sender: FDA-Public Use
  Company Number: US-PFIZER INC-2013071270

PATIENT
  Age: 53 Year
  Sex: Female
  Weight: 106.58 kg

DRUGS (6)
  1. LYRICA [Suspect]
     Indication: NEUROPATHY PERIPHERAL
     Dosage: 300 MG, 1X/DAY
     Route: 048
  2. ATENOLOL [Concomitant]
     Dosage: 25 MG, 1X/DAY
     Route: 048
  3. LEVOTHYROXINE [Concomitant]
     Dosage: 175 UG, 1X/DAY
     Route: 048
  4. LISINOPRIL [Concomitant]
     Dosage: 20 MG, 1X/DAY
     Route: 048
  5. HYDROCODONE [Concomitant]
     Dosage: UNK, 3X/DAY
  6. JANUVIA [Concomitant]
     Dosage: 100 MG, 1X/DAY

REACTIONS (1)
  - Musculoskeletal disorder [Unknown]
